FAERS Safety Report 4968675-6 (Version None)
Quarter: 2006Q2

REPORT INFORMATION
  Report Type: 
  Country: None (occurrence: None)
  Receive Date: 20060411
  Receipt Date: 20060331
  Transmission Date: 20061013
  Serious: Yes (Hospitalization)
  Sender: FDA-Public Use
  Company Number: 2006UW05852

PATIENT
  Age: 73 Year
  Sex: Male
  Weight: 85.2 kg

DRUGS (4)
  1. TOPROL-XL [Suspect]
     Indication: TACHYCARDIA
     Route: 048
  2. ALLOPURINOL [Concomitant]
  3. ZYRTEC [Concomitant]
  4. HYDROCHLOROTHIAZIDE [Concomitant]

REACTIONS (3)
  - INNER EAR DISORDER [None]
  - RENAL DISORDER [None]
  - VERTIGO [None]
